FAERS Safety Report 5180161-X (Version None)
Quarter: 2006Q4

REPORT INFORMATION
  Report Type: 
  Country: None (occurrence: None)
  Receive Date: 20061212
  Receipt Date: 20061201
  Transmission Date: 20070319
  Serious: Yes (Hospitalization)
  Sender: FDA-Public Use
  Company Number: GXKR2006GB07817

PATIENT
  Age: 68 Year
  Sex: Male

DRUGS (4)
  1. CO-CODAMOL [Suspect]
     Indication: MYALGIA
     Dosage: 1 DF, ORAL
     Route: 048
     Dates: start: 20061029, end: 20061029
  2. ADALAT CC [Concomitant]
  3. BENDROFLUMETHIAZIDE [Concomitant]
  4. OMEPRAZOLE [Concomitant]

REACTIONS (1)
  - GASTRITIS [None]
